FAERS Safety Report 10175750 (Version 1)
Quarter: 2014Q2

REPORT INFORMATION
  Report Type: Spontaneous
  Country: US (occurrence: US)
  Receive Date: 20140516
  Receipt Date: 20140516
  Transmission Date: 20141212
  Serious: Yes (Other)
  Sender: FDA-Public Use
  Company Number: US-ASTRAZENECA-2014SE32368

PATIENT
  Age: 79 Year
  Sex: Male
  Weight: 99.8 kg

DRUGS (2)
  1. PULMICORT FLEXHALER [Suspect]
     Indication: DYSPNOEA
     Dosage: 1 PUFF TWO TIMES A DAY
     Route: 055
     Dates: start: 20140306
  2. PULMICORT FLEXHALER [Suspect]
     Indication: BRONCHITIS
     Dosage: 1 PUFF TWO TIMES A DAY
     Route: 055
     Dates: start: 20140306

REACTIONS (3)
  - Throat tightness [Not Recovered/Not Resolved]
  - Off label use [Unknown]
  - Off label use [Unknown]
